FAERS Safety Report 24145684 (Version 2)
Quarter: 2024Q4

REPORT INFORMATION
  Report Type: Spontaneous
  Country: US (occurrence: US)
  Receive Date: 20240729
  Receipt Date: 20241119
  Transmission Date: 20250115
  Serious: Yes (Hospitalization, Other)
  Sender: CATALYST PHARMA
  Company Number: US-CATALYST PHARMACEUTICALS-US-CATA-24-00540

PATIENT
  Sex: Male
  Weight: 36.735 kg

DRUGS (4)
  1. AGAMREE [Suspect]
     Active Substance: VAMOROLONE
     Indication: Duchenne muscular dystrophy
     Dosage: 5.7 ML ONCE DAILY
     Route: 048
     Dates: start: 20240517, end: 2024
  2. AGAMREE [Suspect]
     Active Substance: VAMOROLONE
     Dosage: 5.5 ML ONCE DAILY
     Route: 048
     Dates: start: 20240716
  3. VITAMINS [Concomitant]
     Active Substance: VITAMINS
     Indication: Product used for unknown indication
     Dosage: DAILY
     Route: 065
  4. VITAMIN D3 [Concomitant]
     Active Substance: CHOLECALCIFEROL
     Indication: Product used for unknown indication
     Dosage: 25 MCG DAILY (1000 UNITS ONCE DAILY)
     Route: 065

REACTIONS (7)
  - Accident [Not Recovered/Not Resolved]
  - Spinal fracture [Not Recovered/Not Resolved]
  - Weight decreased [Unknown]
  - Secretion discharge [Not Recovered/Not Resolved]
  - Sinusitis [Not Recovered/Not Resolved]
  - Bone density decreased [Not Recovered/Not Resolved]
  - Cough [Not Recovered/Not Resolved]

NARRATIVE: CASE EVENT DATE: 20240101
